FAERS Safety Report 5118173-4 (Version None)
Quarter: 2006Q3

REPORT INFORMATION
  Report Type: 
  Country: None (occurrence: None)
  Receive Date: 20060928
  Receipt Date: 20060928
  Transmission Date: 20061208
  Serious: Yes (Hospitalization)
  Sender: FDA-Public Use
  Company Number: None

PATIENT
  Sex: Male
  Weight: 72 kg

DRUGS (6)
  1. CISPLATIN [Suspect]
     Dosage: 120 MG
     Dates: start: 20060912
  2. DACARBAZINE [Suspect]
     Dosage: 1600 MG
  3. G-CSF (FILGRASTIM, AMGEN) [Suspect]
     Dosage: 4320 MCG
  4. INTERLEUKIN-2 RECOMBINANT (CHIRON; ALDESLEUKIN; PROLEUKIN) [Suspect]
     Dosage: 72 MU
  5. VINBLASTINE SULFATE [Suspect]
     Dosage: 9.6 MG
  6. INTRON A [Suspect]
     Dosage: 50 MU

REACTIONS (2)
  - EPIGLOTTITIS [None]
  - PANCYTOPENIA [None]
